FAERS Safety Report 25207970 (Version 3)
Quarter: 2025Q2

REPORT INFORMATION
  Report Type: Spontaneous
  Country: JP (occurrence: JP)
  Receive Date: 20250417
  Receipt Date: 20250520
  Transmission Date: 20250716
  Serious: Yes (Other)
  Sender: BOEHRINGER INGELHEIM
  Company Number: JP-NBI-2025-BI-021940

PATIENT
  Age: 71 Year
  Sex: Female
  Weight: 50.8 kg

DRUGS (4)
  1. OFEV [Suspect]
     Active Substance: NINTEDANIB
     Indication: Systemic scleroderma
     Dates: start: 202004, end: 202405
  2. PREDNISOLONE [Concomitant]
     Active Substance: PREDNISOLONE
     Indication: Systemic scleroderma
  3. PREDNISOLONE [Concomitant]
     Active Substance: PREDNISOLONE
  4. MYCOPHENOLATE MOFETIL [Concomitant]
     Active Substance: MYCOPHENOLATE MOFETIL
     Indication: Systemic scleroderma

REACTIONS (1)
  - Pneumatosis intestinalis [Recovering/Resolving]

NARRATIVE: CASE EVENT DATE: 20240516
